FAERS Safety Report 9620639 (Version 4)
Quarter: 2014Q1

REPORT INFORMATION
  Report Type: Report from Study
  Country: ZA (occurrence: ZA)
  Receive Date: 20131015
  Receipt Date: 20140307
  Transmission Date: 20141002
  Serious: Yes (Death, Hospitalization)
  Sender: FDA-Public Use
  Company Number: ZA-ROCHE-1288795

PATIENT
  Age: 53 Year
  Sex: Male

DRUGS (2)
  1. MIRCERA [Suspect]
     Indication: NEPHROGENIC ANAEMIA
     Route: 058
     Dates: start: 201308
  2. MIRCERA [Suspect]
     Route: 058
     Dates: start: 201309

REACTIONS (4)
  - Disease progression [Fatal]
  - Pulmonary oedema [Unknown]
  - Tuberculosis [Unknown]
  - Peritonitis [Unknown]
